FAERS Safety Report 10925985 (Version 1)
Quarter: 2015Q1

REPORT INFORMATION
  Report Type: Spontaneous
  Country: US (occurrence: US)
  Receive Date: 20150318
  Receipt Date: 20150318
  Transmission Date: 20150721
  Serious: Yes (Other)
  Sender: FDA-Public Use
  Company Number: US-GLAXOSMITHKLINE-US2015GSK035285

PATIENT
  Age: 40 Year
  Sex: Male

DRUGS (1)
  1. LAMICTAL XR [Suspect]
     Active Substance: LAMOTRIGINE
     Indication: BIPOLAR DISORDER
     Dosage: 300 MG, U
     Dates: start: 2011

REACTIONS (2)
  - Cerebral haemorrhage [Unknown]
  - Craniotomy [Unknown]

NARRATIVE: CASE EVENT DATE: 201408
